FAERS Safety Report 8960458 (Version 1)
Quarter: 2012Q4

REPORT INFORMATION
  Report Type: Spontaneous
  Country: US (occurrence: None)
  Receive Date: 20121211
  Receipt Date: 20121211
  Transmission Date: 20130627
  Serious: Yes (Death, Life-Threatening, Hospitalization, Other)
  Sender: FDA-Public Use
  Company Number: None

PATIENT
  Age: 65 Year
  Sex: Male
  Weight: 70.76 kg

DRUGS (2)
  1. CEFAZOLIN [Suspect]
     Indication: SPINAL OPERATION
     Dates: start: 20111011, end: 20120603
  2. CEFAZOLIN [Suspect]
     Indication: HEADACHE
     Dates: start: 20111011, end: 20120603

REACTIONS (5)
  - Headache [None]
  - Mycobacterium avium complex infection [None]
  - Cerebrospinal fluid leakage [None]
  - Surgical procedure repeated [None]
  - Pneumonia klebsiella [None]
